FAERS Safety Report 6504461-3 (Version None)
Quarter: 2009Q4

REPORT INFORMATION
  Report Type: 
  Country: None (occurrence: None)
  Receive Date: 20091215
  Receipt Date: 20091201
  Transmission Date: 20100525
  Serious: Yes (Other)
  Sender: FDA-Public Use
  Company Number: US-DEXPHARM-20092-123

PATIENT
  Age: 78 Year
  Sex: Male

DRUGS (5)
  1. OMEPRAZOLE [Suspect]
  2. LANSOPRAZOLE [Concomitant]
  3. NIFEDICAL [Concomitant]
  4. TERAZOSIN HCL [Concomitant]
  5. OXYBUTYNIN CHLORIDE [Concomitant]

REACTIONS (2)
  - DRUG ERUPTION [None]
  - LICHENOID KERATOSIS [None]
